FAERS Safety Report 15266019 (Version 2)
Quarter: 2018Q3

REPORT INFORMATION
  Report Type: Spontaneous
  Country: AU (occurrence: AU)
  Receive Date: 20180810
  Receipt Date: 20180911
  Transmission Date: 20181010
  Serious: Yes (Other)
  Sender: FDA-Public Use
  Company Number: AU-GLAXOSMITHKLINE-AU2018GSK143301

PATIENT
  Age: 55 Year
  Sex: Female

DRUGS (3)
  1. NICABATE [Suspect]
     Active Substance: NICOTINE
     Indication: SMOKING CESSATION THERAPY
     Dosage: 21 MG, UNK
  2. NICOTINE. [Suspect]
     Active Substance: NICOTINE
     Indication: SMOKING CESSATION THERAPY
     Dosage: UNK
  3. NICABATE [Suspect]
     Active Substance: NICOTINE
     Dosage: 21 MG, UNK

REACTIONS (13)
  - Ocular discomfort [Recovered/Resolved]
  - Arteriosclerosis [Unknown]
  - Feeling abnormal [Recovered/Resolved]
  - Adverse event [Unknown]
  - Paralysis [Unknown]
  - Aphasia [Recovered/Resolved]
  - Arterial occlusive disease [Unknown]
  - Movement disorder [Recovered/Resolved]
  - Ill-defined disorder [Recovered/Resolved]
  - Seizure [Recovered/Resolved]
  - Pain in extremity [Recovered/Resolved]
  - Condition aggravated [Recovered/Resolved]
  - Emphysema [Unknown]
